FAERS Safety Report 6277962-3 (Version None)
Quarter: 2009Q3

REPORT INFORMATION
  Report Type: 
  Country: None (occurrence: None)
  Receive Date: 20090722
  Receipt Date: 20090709
  Transmission Date: 20100115
  Serious: Yes (Other)
  Sender: FDA-Public Use
  Company Number: NL-PFIZER INC-2009238273

PATIENT
  Age: 39 Year

DRUGS (4)
  1. BLINDED MARAVIROC [Suspect]
     Indication: HIV INFECTION
     Dosage: UNK MG, 2X/DAY
     Route: 048
     Dates: start: 20090629, end: 20090707
  2. METOPROLOL [Concomitant]
     Indication: HYPERTENSION
     Dosage: UNK
     Route: 048
  3. TRUVADA [Concomitant]
     Indication: HIV INFECTION
     Dosage: UNK
     Route: 048
  4. EFAVIRENZ [Concomitant]
     Indication: HIV INFECTION
     Dosage: UNK
     Route: 048

REACTIONS (1)
  - HALLUCINATION [None]
